FAERS Safety Report 12903717 (Version 1)
Quarter: 2016Q4

REPORT INFORMATION
  Report Type: Spontaneous
  Country: US (occurrence: US)
  Receive Date: 20161102
  Receipt Date: 20161102
  Transmission Date: 20170207
  Serious: Yes (Other)
  Sender: FDA-Public Use
  Company Number: US-PFIZER INC-2016506549

PATIENT
  Age: 26 Day
  Sex: Female
  Weight: 4.8 kg

DRUGS (3)
  1. MEROPENEM. [Suspect]
     Active Substance: MEROPENEM
     Indication: BACTERAEMIA
     Dosage: 40 MG/KG, EVERY 8 HOURS
     Route: 042
  2. TOBRAMYCIN. [Concomitant]
     Active Substance: TOBRAMYCIN
     Dosage: 3 MG/KG, EVERY 8 HOURS
     Route: 042
  3. GENTAMICIN. [Concomitant]
     Active Substance: GENTAMICIN
     Dosage: 2.5 MG/KG, EVERY 12 HOURS
     Route: 042

REACTIONS (1)
  - Neutropenia [Recovered/Resolved]
